FAERS Safety Report 21338763 (Version 2)
Quarter: 2022Q3

REPORT INFORMATION
  Report Type: Spontaneous
  Country: FR (occurrence: FR)
  Receive Date: 20220915
  Receipt Date: 20220919
  Transmission Date: 20221027
  Serious: Yes (Other)
  Sender: FDA-Public Use
  Company Number: FR-NOVARTISPH-NVSC2022FR205767

PATIENT
  Age: 73 Year
  Sex: Male
  Weight: 77.5 kg

DRUGS (5)
  1. TACROLIMUS [Suspect]
     Active Substance: TACROLIMUS
     Indication: Prophylaxis against transplant rejection
     Dosage: 5 MG, QD
     Route: 048
     Dates: start: 20181027, end: 20210107
  2. TACROLIMUS [Suspect]
     Active Substance: TACROLIMUS
     Dosage: 4 MG, QD
     Route: 048
     Dates: start: 20210108, end: 20220224
  3. MYCOPHENOLIC ACID [Concomitant]
     Active Substance: MYCOPHENOLIC ACID
     Indication: Immunosuppression
     Dosage: 360 UNK (UNITS UNKNOWN, TOTAL DAILY DOSE)
     Route: 065
     Dates: start: 20200401, end: 20200702
  4. MYCOPHENOLIC ACID [Concomitant]
     Active Substance: MYCOPHENOLIC ACID
     Indication: Transplant rejection
     Dosage: 720 UNK (UNITS UNKNOWN, TOTAL DAILY DOSE)
     Route: 065
     Dates: start: 20200703
  5. MYCOPHENOLIC ACID [Concomitant]
     Active Substance: MYCOPHENOLIC ACID
     Dosage: 720 UNK  (UNITS UNKNOWN, TOTAL DAILY DOSE)
     Route: 065
     Dates: start: 20150904, end: 20200331

REACTIONS (1)
  - External ear neoplasm malignant [Recovering/Resolving]

NARRATIVE: CASE EVENT DATE: 20190329
